FAERS Safety Report 4626964-9 (Version None)
Quarter: 2005Q1

REPORT INFORMATION
  Report Type: 
  Country: None (occurrence: None)
  Receive Date: 20050331
  Receipt Date: 20050316
  Transmission Date: 20050727
  Serious: Yes (Life-Threatening, Hospitalization)
  Sender: FDA-Public Use
  Company Number: DSA_26174_2005

PATIENT
  Age: 77 Year
  Sex: Female

DRUGS (6)
  1. MASDIL [Suspect]
     Indication: MYOCARDIAL ISCHAEMIA
     Dosage: TAB DAILY PO
     Route: 048
  2. FELDENE [Suspect]
     Indication: OSTEOARTHRITIS
     Dosage: 20 MG Q DAY PO
     Route: 048
     Dates: start: 20041130, end: 20041217
  3. INDAPAMIDE [Concomitant]
  4. EFFERALGAN [Concomitant]
  5. OMEPRAZOLE [Concomitant]
  6. ENALAPRIL [Concomitant]

REACTIONS (5)
  - GASTRIC ULCER [None]
  - GASTRITIS EROSIVE [None]
  - GASTROINTESTINAL HAEMORRHAGE [None]
  - HAEMATOCRIT DECREASED [None]
  - HAEMOGLOBIN DECREASED [None]
